FAERS Safety Report 21947499 (Version 1)
Quarter: 2023Q1

REPORT INFORMATION
  Report Type: Spontaneous
  Country: MX (occurrence: None)
  Receive Date: 20230202
  Receipt Date: 20230202
  Transmission Date: 20230417
  Serious: Yes (Other)
  Sender: FDA-Public Use
  Company Number: 2023A021590

PATIENT
  Age: 21825 Day
  Sex: Female
  Weight: 62 kg

DRUGS (3)
  1. LYNPARZA [Suspect]
     Active Substance: OLAPARIB
     Indication: Ovarian cancer
     Dosage: 8 TABLETS IN THE MORNING AND 8 TABLETS AT NIGHT
     Route: 048
     Dates: end: 20221016
  2. LYNPARZA [Suspect]
     Active Substance: OLAPARIB
     Indication: Ovarian cancer
     Route: 048
     Dates: start: 20221117, end: 20221216
  3. LYNPARZA [Suspect]
     Active Substance: OLAPARIB
     Indication: Ovarian cancer
     Route: 048
     Dates: start: 20230119

REACTIONS (4)
  - Tumour marker increased [Unknown]
  - Expired product administered [Unknown]
  - Product dispensing error [Unknown]
  - Product supply issue [Unknown]

NARRATIVE: CASE EVENT DATE: 20221116
